FAERS Safety Report 5588779-7 (Version None)
Quarter: 2008Q1

REPORT INFORMATION
  Report Type: 
  Country: None (occurrence: None)
  Receive Date: 20080111
  Receipt Date: 20080109
  Transmission Date: 20080703
  Serious: Yes (Hospitalization)
  Sender: FDA-Public Use
  Company Number: B0501768A

PATIENT
  Age: 80 Year
  Sex: Male

DRUGS (9)
  1. VALTREX [Suspect]
     Indication: HERPES ZOSTER
     Dosage: 1000MG THREE TIMES PER DAY
     Route: 048
     Dates: start: 20071220, end: 20071223
  2. ALKERAN [Suspect]
     Indication: MULTIPLE MYELOMA
  3. DUROTEP [Concomitant]
     Route: 062
  4. UNKNOWN DRUG [Concomitant]
     Route: 048
  5. NOVAMIN [Concomitant]
     Route: 065
  6. DOGMATYL [Concomitant]
     Route: 065
  7. MAGNESIUM OXIDE [Concomitant]
     Route: 048
  8. YODEL S [Concomitant]
     Route: 048
  9. PREDNISOLONE [Concomitant]
     Indication: MULTIPLE MYELOMA
     Route: 065

REACTIONS (7)
  - ALTERED STATE OF CONSCIOUSNESS [None]
  - DIZZINESS [None]
  - HALLUCINATION [None]
  - HEADACHE [None]
  - HERPES ZOSTER [None]
  - NAUSEA [None]
  - VOMITING [None]
